FAERS Safety Report 10041501 (Version 2)
Quarter: 2014Q1

REPORT INFORMATION
  Report Type: Other
  Country: JP (occurrence: JP)
  Receive Date: 20140327
  Receipt Date: 20140327
  Transmission Date: 20141002
  Serious: Yes (Death)
  Sender: FDA-Public Use
  Company Number: JP-DSJP-DSJ-2014-00361

PATIENT
  Sex: 0

DRUGS (6)
  1. OLMETEC TABLETS 20MG [Suspect]
     Indication: PRODUCT USED FOR UNKNOWN INDICATION
     Route: 048
     Dates: end: 20130406
  2. MEVALOTIN TABLET 10MG [Suspect]
     Indication: PRODUCT USED FOR UNKNOWN INDICATION
     Route: 048
     Dates: end: 20130406
  3. LOXONIN TABLETS 60MG [Suspect]
     Indication: FRACTURE
     Dosage: WHEN PAINFUL   EVERY
     Route: 048
     Dates: end: 20130406
  4. FAMOTIDINE [Suspect]
     Indication: PRODUCT USED FOR UNKNOWN INDICATION
     Dosage: 20 MG, QD
     Route: 048
     Dates: end: 20130406
  5. SOLON (PREDNISOLONE) [Suspect]
     Indication: PRODUCT USED FOR UNKNOWN INDICATION
     Dosage: WHEN PAINFUL   EVERY
     Route: 048
     Dates: end: 20130406
  6. SENEVACUL [Suspect]
     Dosage: WHEN CONSTIPATION   EVERY
     Route: 048
     Dates: end: 20130406

REACTIONS (1)
  - Hepatitis fulminant [Fatal]
